FAERS Safety Report 10608290 (Version 1)
Quarter: 2014Q4

REPORT INFORMATION
  Report Type: Spontaneous
  Country: US (occurrence: US)
  Receive Date: 20141125
  Receipt Date: 20141125
  Transmission Date: 20150529
  Serious: Yes (Hospitalization)
  Sender: FDA-Public Use
  Company Number: CHPA2014US015556

PATIENT
  Age: 59 Year
  Sex: Female

DRUGS (11)
  1. PHENYLEPHRINE [Suspect]
     Active Substance: PHENYLEPHRINE\PHENYLEPHRINE HYDROCHLORIDE
     Indication: SINUSITIS
  2. PHENYLEPHRINE [Suspect]
     Active Substance: PHENYLEPHRINE\PHENYLEPHRINE HYDROCHLORIDE
     Indication: OFF LABEL USE
  3. CHLORPHENAMINE [Concomitant]
     Active Substance: CHLORPHENIRAMINE MALEATE
     Indication: SINUS HEADACHE
     Dosage: UNK
     Route: 048
  4. ACETAMINOPHEN. [Concomitant]
     Active Substance: ACETAMINOPHEN
     Indication: SINUS HEADACHE
     Dosage: UNK
     Route: 048
  5. DEXTROMETHORFAN [Concomitant]
     Indication: SINUS HEADACHE
     Dosage: UNK
     Route: 048
  6. CHLORPHENAMINE [Concomitant]
     Active Substance: CHLORPHENIRAMINE MALEATE
     Indication: SINUSITIS
  7. ACETAMINOPHEN. [Concomitant]
     Active Substance: ACETAMINOPHEN
     Indication: SINUSITIS
  8. PSEUDOEPHEDRINE [Concomitant]
     Active Substance: PSEUDOEPHEDRINE
     Indication: SINUS HEADACHE
     Dosage: UNK
     Route: 048
  9. PSEUDOEPHEDRINE [Concomitant]
     Active Substance: PSEUDOEPHEDRINE
     Indication: SINUSITIS
  10. PHENYLEPHRINE [Suspect]
     Active Substance: PHENYLEPHRINE\PHENYLEPHRINE HYDROCHLORIDE
     Indication: SINUS HEADACHE
     Dosage: UNK
     Route: 048
  11. DEXTROMETHORFAN [Concomitant]
     Indication: SINUSITIS

REACTIONS (11)
  - Cerebral haemorrhage [Recovering/Resolving]
  - Gaze palsy [Recovering/Resolving]
  - Urinary incontinence [Recovering/Resolving]
  - Blood pressure systolic increased [Recovering/Resolving]
  - Aphasia [Not Recovered/Not Resolved]
  - Blood potassium abnormal [Recovering/Resolving]
  - Reversible cerebral vasoconstriction syndrome [Recovering/Resolving]
  - Headache [Recovering/Resolving]
  - Hemiparesis [Not Recovered/Not Resolved]
  - Ataxia [Not Recovered/Not Resolved]
  - Faecal incontinence [Recovering/Resolving]
